FAERS Safety Report 4528001-3 (Version None)
Quarter: 2004Q4

REPORT INFORMATION
  Report Type: 
  Country: None (occurrence: None)
  Receive Date: 20041123
  Receipt Date: 20040303
  Transmission Date: 20050328
  Serious: Yes (Other)
  Sender: FDA-Public Use
  Company Number: 2004014937

PATIENT

DRUGS (2)
  1. LIPITOR [Suspect]
     Indication: BLOOD CHOLESTEROL
     Dosage: 80 MG (DAILY), ORAL
     Route: 048
  2. CYCLOSPORINE [Concomitant]

REACTIONS (1)
  - RHABDOMYOLYSIS [None]
